FAERS Safety Report 21773218 (Version 2)
Quarter: 2023Q1

REPORT INFORMATION
  Report Type: Spontaneous
  Country: US (occurrence: US)
  Receive Date: 20221223
  Receipt Date: 20230109
  Transmission Date: 20230417
  Serious: Yes (Other)
  Sender: FDA-Public Use
  Company Number: US-COLGATE PALMOLIVE COMPANY-20221202216

PATIENT
  Sex: Female

DRUGS (1)
  1. COLGATE SENSITIVE COMPLETE PROTECTION [Suspect]
     Active Substance: POTASSIUM NITRATE\SODIUM FLUORIDE
     Indication: Hyperaesthesia teeth
     Dosage: UNK, QD
     Dates: start: 20090909

REACTIONS (7)
  - Toothache [Not Recovered/Not Resolved]
  - Tooth injury [Unknown]
  - Swelling face [Not Recovered/Not Resolved]
  - Pain [Unknown]
  - Tooth infection [Unknown]
  - Abscess [Unknown]
  - Osteomyelitis [Not Recovered/Not Resolved]

NARRATIVE: CASE EVENT DATE: 20221201
